FAERS Safety Report 5971551-3 (Version None)
Quarter: 2008Q4

REPORT INFORMATION
  Report Type: 
  Country: None (occurrence: None)
  Receive Date: 20081201
  Receipt Date: 20080930
  Transmission Date: 20090506
  Serious: No
  Sender: FDA-Public Use
  Company Number: US-AMGEN-KDL296855

PATIENT
  Sex: Female
  Weight: 61 kg

DRUGS (1)
  1. ENBREL [Suspect]
     Indication: SPONDYLOARTHROPATHY
     Route: 058
     Dates: start: 20080512, end: 20080721

REACTIONS (6)
  - ALANINE AMINOTRANSFERASE INCREASED [None]
  - ASPARTATE AMINOTRANSFERASE INCREASED [None]
  - EYE PAIN [None]
  - FATIGUE [None]
  - MUSCULAR WEAKNESS [None]
  - WHITE BLOOD CELL COUNT DECREASED [None]
